FAERS Safety Report 6693761-2 (Version None)
Quarter: 2010Q2

REPORT INFORMATION
  Report Type: 
  Country: None (occurrence: None)
  Receive Date: 20100423
  Receipt Date: 20091215
  Transmission Date: 20101027
  Serious: No
  Sender: FDA-Public Use
  Company Number: A0835173A

PATIENT
  Age: 52 Year
  Sex: Female

DRUGS (2)
  1. DEXTROAMPHETAMINE [Suspect]
     Indication: NARCOLEPSY
     Dosage: 1TAB PER DAY
     Route: 048
     Dates: start: 20040101
  2. ANTIDEPRESSANT [Concomitant]

REACTIONS (1)
  - DRUG INEFFECTIVE [None]
